FAERS Safety Report 22160182 (Version 3)
Quarter: 2024Q3

REPORT INFORMATION
  Report Type: Spontaneous
  Country: US (occurrence: US)
  Receive Date: 20230331
  Receipt Date: 20240927
  Transmission Date: 20241017
  Serious: No
  Sender: NOVARTIS
  Company Number: US-002147023-NVSC2023US074487

PATIENT
  Age: 73 Year
  Sex: Female

DRUGS (1)
  1. LEQVIO [Suspect]
     Active Substance: INCLISIRAN SODIUM
     Indication: Hyperlipidaemia
     Dosage: 284 MG/1.5 ML, OTHER (THIS WAS THE FIRST INJECTION, NEXT ONE WOULD BE IN 3 MONTHS AND THEN ONCE EVER
     Route: 058
     Dates: start: 20230328, end: 20230328

REACTIONS (3)
  - Feeling hot [Recovered/Resolved]
  - Dizziness [Recovered/Resolved]
  - Flatulence [Recovered/Resolved]

NARRATIVE: CASE EVENT DATE: 20230328
